FAERS Safety Report 11689307 (Version 2)
Quarter: 2016Q4

REPORT INFORMATION
  Report Type: Spontaneous
  Country: CA (occurrence: CA)
  Receive Date: 20151102
  Receipt Date: 20161107
  Transmission Date: 20170206
  Serious: Yes (Other)
  Sender: FDA-Public Use
  Company Number: CA-009507513-1510CAN013517

PATIENT
  Sex: Male

DRUGS (3)
  1. TEMODAL [Suspect]
     Active Substance: TEMOZOLOMIDE
     Dosage: 315 MG, 5 DAYS EVERY 28 DAYS
     Route: 048
     Dates: start: 20151015
  2. TEMODAL [Suspect]
     Active Substance: TEMOZOLOMIDE
     Indication: GLIOBLASTOMA
     Dosage: 315 MG, 5 DAYS EVERY 28 DAYS
     Route: 048
     Dates: start: 20140609, end: 201507
  3. TEMODAL [Suspect]
     Active Substance: TEMOZOLOMIDE
     Dosage: 315 MG, 5 DAYS EVERY 28 DAYS
     Route: 048
     Dates: start: 20161028

REACTIONS (1)
  - Brain neoplasm malignant [Unknown]

NARRATIVE: CASE EVENT DATE: 2015
